FAERS Safety Report 16288789 (Version 2)
Quarter: 2019Q2

REPORT INFORMATION
  Report Type: Spontaneous
  Country: BR (occurrence: BR)
  Receive Date: 20190509
  Receipt Date: 20190520
  Transmission Date: 20190711
  Serious: Yes (Death)
  Sender: FDA-Public Use
  Company Number: BR-ROCHE-2309332

PATIENT
  Sex: Male

DRUGS (16)
  1. CYCLOPHOSPHAMIDE. [Suspect]
     Active Substance: CYCLOPHOSPHAMIDE
     Indication: DIFFUSE LARGE B-CELL LYMPHOMA
     Dosage: 1 CYCLE
     Route: 065
     Dates: start: 20180801
  2. VINCRISTINE [Suspect]
     Active Substance: VINCRISTINE
     Dosage: 2 CYCLES
     Route: 065
     Dates: start: 20180824, end: 20180914
  3. CISPLATIN. [Suspect]
     Active Substance: CISPLATIN
     Dosage: 2 CYCLES
     Route: 065
     Dates: start: 20181031, end: 20181122
  4. DOXORUBICIN [Suspect]
     Active Substance: DOXORUBICIN
     Dosage: 2 CYCLES
     Route: 065
     Dates: start: 20180824, end: 20180914
  5. RITUXIMAB. [Suspect]
     Active Substance: RITUXIMAB
     Indication: DIFFUSE LARGE B-CELL LYMPHOMA
     Dosage: 2 CYCLES
     Route: 065
     Dates: start: 20180824, end: 20180914
  6. DOXORUBICIN [Suspect]
     Active Substance: DOXORUBICIN
     Indication: DIFFUSE LARGE B-CELL LYMPHOMA
     Dosage: 1 CYCLE
     Route: 065
     Dates: start: 20180801
  7. PREDNISONE. [Suspect]
     Active Substance: PREDNISONE
     Indication: DIFFUSE LARGE B-CELL LYMPHOMA
     Dosage: 1 CYCLE
     Route: 065
     Dates: start: 20180801
  8. CYTARABINE. [Suspect]
     Active Substance: CYTARABINE
     Indication: DIFFUSE LARGE B-CELL LYMPHOMA
     Dosage: 1 CYCLE
     Route: 065
     Dates: start: 20181010
  9. DEXAMETHASONE. [Suspect]
     Active Substance: DEXAMETHASONE
     Dosage: 2 CYCLES
     Route: 065
     Dates: start: 20181031, end: 20181122
  10. VINCRISTINE [Suspect]
     Active Substance: VINCRISTINE
     Indication: DIFFUSE LARGE B-CELL LYMPHOMA
     Dosage: 1 CYCLE
     Route: 065
     Dates: start: 20180801
  11. CYCLOPHOSPHAMIDE. [Suspect]
     Active Substance: CYCLOPHOSPHAMIDE
     Dosage: 2 CYCLES
     Route: 065
     Dates: start: 20180824, end: 20180914
  12. PREDNISONE. [Suspect]
     Active Substance: PREDNISONE
     Dosage: 2 CYCLES
     Route: 065
     Dates: start: 20180824, end: 20180914
  13. CISPLATIN. [Suspect]
     Active Substance: CISPLATIN
     Indication: DIFFUSE LARGE B-CELL LYMPHOMA
     Dosage: 1 CYCLE
     Route: 065
     Dates: start: 20181010
  14. ETOPOSIDE. [Suspect]
     Active Substance: ETOPOSIDE
     Indication: DIFFUSE LARGE B-CELL LYMPHOMA
     Dosage: 2 CYCLES
     Route: 065
     Dates: start: 20180824, end: 20180914
  15. DEXAMETHASONE. [Suspect]
     Active Substance: DEXAMETHASONE
     Indication: DIFFUSE LARGE B-CELL LYMPHOMA
     Dosage: 1 CYCLE
     Route: 065
     Dates: start: 20181010
  16. GEMCITABINE [Suspect]
     Active Substance: GEMCITABINE\GEMCITABINE HYDROCHLORIDE
     Indication: DIFFUSE LARGE B-CELL LYMPHOMA
     Dosage: 2 CYCLES
     Route: 065
     Dates: start: 20181031, end: 20181122

REACTIONS (3)
  - Death [Fatal]
  - Platelet count decreased [Unknown]
  - Toxicity to various agents [Unknown]
